FAERS Safety Report 20436554 (Version 1)
Quarter: 2022Q1

REPORT INFORMATION
  Report Type: Spontaneous
  Country: FI (occurrence: None)
  Receive Date: 20220207
  Receipt Date: 20220207
  Transmission Date: 20220423
  Serious: Yes (Other)
  Sender: FDA-Public Use
  Company Number: FI-ROCHE-3012917

PATIENT
  Age: 52 Year
  Sex: Female

DRUGS (2)
  1. TOCILIZUMAB [Suspect]
     Active Substance: TOCILIZUMAB
     Indication: Rheumatoid arthritis
     Route: 042
  2. TOCILIZUMAB [Suspect]
     Active Substance: TOCILIZUMAB
     Indication: Rheumatoid arthritis
     Route: 058
     Dates: start: 202103

REACTIONS (3)
  - Bone pain [Unknown]
  - Stress fracture [Unknown]
  - Arthralgia [Unknown]

NARRATIVE: CASE EVENT DATE: 20211201
